FAERS Safety Report 10707051 (Version 1)
Quarter: 2015Q1

REPORT INFORMATION
  Report Type: Spontaneous
  Country: GR (occurrence: GR)
  Receive Date: 20150113
  Receipt Date: 20150113
  Transmission Date: 20150721
  Serious: Yes (Hospitalization)
  Sender: FDA-Public Use
  Company Number: PHHY2015GR001891

PATIENT
  Age: 55 Year
  Sex: Female

DRUGS (2)
  1. CRESTOR [Concomitant]
     Active Substance: ROSUVASTATIN CALCIUM
     Indication: BLOOD CHOLESTEROL INCREASED
     Route: 065
  2. GILENYA [Suspect]
     Active Substance: FINGOLIMOD HYDROCHLORIDE
     Indication: MULTIPLE SCLEROSIS
     Route: 065
     Dates: start: 201403

REACTIONS (6)
  - Viral infection [Unknown]
  - Headache [Unknown]
  - Discomfort [Unknown]
  - Palpitations [Unknown]
  - Hypertension [Unknown]
  - Cardiac disorder [Unknown]

NARRATIVE: CASE EVENT DATE: 201412
